FAERS Safety Report 23745141 (Version 3)
Quarter: 2024Q2

REPORT INFORMATION
  Report Type: Report from Study
  Country: NL (occurrence: NL)
  Receive Date: 20240416
  Receipt Date: 20240531
  Transmission Date: 20240716
  Serious: Yes (Hospitalization, Other)
  Sender: FDA-Public Use
  Company Number: NL-ABBVIE-5718285

PATIENT
  Age: 82 Year
  Sex: Male

DRUGS (7)
  1. CARBIDOPA\LEVODOPA [Suspect]
     Active Substance: CARBIDOPA\LEVODOPA
     Indication: Parkinson^s disease
     Dosage: MD: 11.0 ML, CD: 2.5 ML/H, ED: 1.0 ML?DURATION TEXT: REMAINS AT 16 HOURS
     Route: 050
     Dates: start: 20240416
  2. CARBIDOPA\LEVODOPA [Suspect]
     Active Substance: CARBIDOPA\LEVODOPA
     Dosage: LAST ADMIN DATE: 2024?REMAINS AT 16 HOURS
     Route: 050
     Dates: start: 20240226
  3. CARBIDOPA\LEVODOPA [Suspect]
     Active Substance: CARBIDOPA\LEVODOPA
     Dosage: MD: 11.0 ML, CD: 2.5 ML/H, ED: 1.0 ML/REMAINS AT 16 HOURS
     Route: 050
     Dates: start: 20240409, end: 20240416
  4. CARBIDOPA\LEVODOPA [Suspect]
     Active Substance: CARBIDOPA\LEVODOPA
     Dosage: MD: 11.0 ML, CD: 2.7 ML/H, ED: 1.0 ML?DURATION TEXT: REMAINS AT 16 HOURS
     Route: 050
     Dates: start: 20240408, end: 20240409
  5. SINEMET [Suspect]
     Active Substance: CARBIDOPA\LEVODOPA
     Indication: Product used for unknown indication
     Route: 065
     Dates: end: 20240409
  6. POLYETHYLENE GLYCOLS [Concomitant]
     Active Substance: POLYETHYLENE GLYCOLS
     Indication: Gastrointestinal motility disorder
     Dosage: DAILY
  7. Microlax [Concomitant]
     Indication: Gastrointestinal motility disorder
     Dosage: IF NECESSARY

REACTIONS (18)
  - Cerebrovascular accident [Recovered/Resolved]
  - Muscular weakness [Unknown]
  - Wrong technique in product usage process [Not Recovered/Not Resolved]
  - Delirium [Unknown]
  - Muscle rigidity [Unknown]
  - Dyskinesia [Recovering/Resolving]
  - Apathy [Not Recovered/Not Resolved]
  - On and off phenomenon [Unknown]
  - Unresponsive to stimuli [Not Recovered/Not Resolved]
  - Loss of personal independence in daily activities [Not Recovered/Not Resolved]
  - Gait disturbance [Not Recovered/Not Resolved]
  - Freezing phenomenon [Unknown]
  - Mobility decreased [Not Recovered/Not Resolved]
  - Nasopharyngitis [Recovered/Resolved]
  - Tension [Not Recovered/Not Resolved]
  - Tremor [Unknown]
  - Unevaluable event [Not Recovered/Not Resolved]
  - Malaise [Unknown]

NARRATIVE: CASE EVENT DATE: 20240101
